FAERS Safety Report 16018290 (Version 3)
Quarter: 2019Q2

REPORT INFORMATION
  Report Type: Report from Study
  Country: CA (occurrence: CA)
  Receive Date: 20190228
  Receipt Date: 20190528
  Transmission Date: 20190711
  Serious: Yes (Hospitalization, Other)
  Sender: FDA-Public Use
  Company Number: CA-JNJFOC-20190234321

PATIENT
  Age: 36 Year
  Sex: Female

DRUGS (1)
  1. SIMPONI [Suspect]
     Active Substance: GOLIMUMAB
     Indication: COLITIS ULCERATIVE
     Dosage: STRENGTH = 100 MG
     Route: 058
     Dates: start: 20171002, end: 20180625

REACTIONS (5)
  - Bipolar disorder [Unknown]
  - Product dose omission [Unknown]
  - Urinary tract infection [Recovered/Resolved]
  - Colitis ulcerative [Unknown]
  - Gastroenteritis viral [Unknown]

NARRATIVE: CASE EVENT DATE: 20180601
